FAERS Safety Report 15215740 (Version 1)
Quarter: 2018Q3

REPORT INFORMATION
  Report Type: Spontaneous
  Country: US (occurrence: US)
  Receive Date: 20180703
  Receipt Date: 20180703
  Transmission Date: 20181010
  Serious: Yes (Other)
  Sender: FDA-Public Use
  Company Number: None

PATIENT
  Age: 54 Year
  Sex: Male
  Weight: 61.65 kg

DRUGS (1)
  1. RECOTHROM [Suspect]
     Active Substance: THROMBIN ALFA
     Indication: PRODUCT USED FOR UNKNOWN INDICATION
     Dosage: ONE TIME BOLUS
     Route: 040
     Dates: start: 20180419, end: 20180419

REACTIONS (4)
  - Incorrect route of drug administration [None]
  - Product label confusion [None]
  - Incorrect product formulation administered [None]
  - Physical product label issue [None]

NARRATIVE: CASE EVENT DATE: 20180419
